FAERS Safety Report 9550315 (Version 1)
Quarter: 2013Q3

REPORT INFORMATION
  Report Type: Spontaneous
  Country: US (occurrence: US)
  Receive Date: 20130924
  Receipt Date: 20130924
  Transmission Date: 20140515
  Serious: No
  Sender: FDA-Public Use
  Company Number: US-SANOFI-AVENTIS-2013SA072751

PATIENT
  Age: 40 Year
  Sex: Female

DRUGS (12)
  1. AUBAGIO [Suspect]
     Dosage: 2 WEEKS
     Route: 048
  2. PANTOPRAZOLE SODIUM [Concomitant]
     Route: 065
  3. MELOXICAM [Concomitant]
     Route: 065
  4. PROMETHAZINE [Concomitant]
     Route: 065
  5. VENLAFAXINE [Concomitant]
     Route: 065
  6. DIAZEPAM [Concomitant]
     Route: 065
  7. PROPRANOLOL [Concomitant]
     Route: 065
  8. ZONISAMIDE [Concomitant]
     Route: 065
  9. ADDERALL [Concomitant]
     Route: 065
  10. LORTAB [Concomitant]
     Dosage: 7.5-500 TABLET
     Route: 065
  11. PRO-AIR [Concomitant]
  12. QVAR [Concomitant]

REACTIONS (1)
  - Nausea [Recovering/Resolving]
